FAERS Safety Report 5907027-9 (Version None)
Quarter: 2008Q4

REPORT INFORMATION
  Report Type: 
  Country: None (occurrence: None)
  Receive Date: 20081002
  Receipt Date: 20081002
  Transmission Date: 20090506
  Serious: No
  Sender: FDA-Public Use
  Company Number: None

PATIENT
  Age: 60 Year
  Sex: Female
  Weight: 72.5755 kg

DRUGS (1)
  1. ZOMETA [Suspect]
     Indication: METASTASIS
     Dosage: ONCE IV
     Route: 042
     Dates: start: 20030913, end: 20080911

REACTIONS (5)
  - ARTHRALGIA [None]
  - DYSGEUSIA [None]
  - FATIGUE [None]
  - GASTRITIS [None]
  - NEUROPATHY PERIPHERAL [None]
